FAERS Safety Report 15171279 (Version 3)
Quarter: 2018Q3

REPORT INFORMATION
  Report Type: Report from Study
  Country: BR (occurrence: BR)
  Receive Date: 20180720
  Receipt Date: 20180903
  Transmission Date: 20181010
  Serious: Yes (Hospitalization)
  Sender: FDA-Public Use
  Company Number: PHHY2018BR048297

PATIENT
  Age: 56 Year
  Sex: Female
  Weight: 82 kg

DRUGS (3)
  1. METHOTREXATE. [Suspect]
     Active Substance: METHOTREXATE
     Indication: PSORIASIS
     Route: 065
  2. COSENTYX [Suspect]
     Active Substance: SECUKINUMAB
     Dosage: 300 MG, QMO
     Route: 058
     Dates: start: 20180329
  3. COSENTYX [Suspect]
     Active Substance: SECUKINUMAB
     Indication: PSORIATIC ARTHROPATHY
     Dosage: 300 MG, QMO
     Route: 058
     Dates: start: 20171205

REACTIONS (15)
  - Arthralgia [Not Recovered/Not Resolved]
  - Wound [Unknown]
  - Cyst [Not Recovered/Not Resolved]
  - Inflammation [Not Recovered/Not Resolved]
  - Pruritus [Unknown]
  - Psoriasis [Not Recovered/Not Resolved]
  - Head discomfort [Unknown]
  - Contusion [Not Recovered/Not Resolved]
  - Fungal infection [Unknown]
  - Bone disorder [Not Recovered/Not Resolved]
  - Post procedural infection [Recovering/Resolving]
  - C-reactive protein increased [Unknown]
  - Infection [Not Recovered/Not Resolved]
  - Blister [Unknown]
  - Osteoarthritis [Not Recovered/Not Resolved]

NARRATIVE: CASE EVENT DATE: 201804
